FAERS Safety Report 5164483-4 (Version None)
Quarter: 2006Q4

REPORT INFORMATION
  Report Type: 
  Country: None (occurrence: None)
  Receive Date: 20061205
  Receipt Date: 20010615
  Transmission Date: 20070319
  Serious: Yes (Other)
  Sender: FDA-Public Use
  Company Number: 2001SUS0535

PATIENT
  Age: 5 Day
  Sex: Female
  Weight: 3 kg

DRUGS (13)
  1. SUSTIVA [Suspect]
     Indication: HIV INFECTION
     Route: 064
     Dates: start: 20000501, end: 20000627
  2. VIDEX [Suspect]
     Indication: HIV INFECTION
     Route: 064
     Dates: start: 20000501
  3. INVIRASE [Suspect]
     Indication: HIV INFECTION
     Route: 064
  4. NORVIR [Suspect]
     Indication: HIV INFECTION
     Route: 064
  5. VIRAMUNE [Suspect]
     Indication: HIV INFECTION
     Route: 064
  6. VIRACEPT [Concomitant]
     Route: 064
  7. RETROVIR [Concomitant]
     Route: 064
  8. PREVISCAN [Concomitant]
     Route: 064
  9. SMZ-TMP [Concomitant]
     Route: 064
  10. DEPAKENE [Concomitant]
     Route: 064
  11. SPECIAFOLDINE [Concomitant]
     Route: 064
  12. VOGALENE [Concomitant]
     Route: 064
  13. OXACILLIN [Concomitant]
     Route: 064

REACTIONS (3)
  - HEPATOSPLENOMEGALY [None]
  - HYPERTRIGLYCERIDAEMIA [None]
  - NEUTROPENIA [None]
